FAERS Safety Report 23320896 (Version 1)
Quarter: 2023Q4

REPORT INFORMATION
  Report Type: Spontaneous
  Country: DE (occurrence: DE)
  Receive Date: 20231220
  Receipt Date: 20231220
  Transmission Date: 20240110
  Serious: Yes (Life-Threatening, Hospitalization)
  Sender: FDA-Public Use
  Company Number: DE-002147023-NVSC2021DE051457

PATIENT
  Age: 45 Year
  Sex: Male
  Weight: 79 kg

DRUGS (26)
  1. MESNA [Suspect]
     Active Substance: MESNA
     Indication: Plasma cell myeloma refractory
     Dosage: 2020 MG, ONCE, DOSAGE FORM: SOLUTION FOR INJECTION
     Route: 065
     Dates: start: 20200810
  2. IFOSFAMIDE [Suspect]
     Active Substance: IFOSFAMIDE
     Indication: Plasma cell myeloma refractory
     Dosage: 10 G, CONTINUOUS INFUSION 24H, DOSAGE FORM: POWDER FOR SOLUTION FOR INFUSION
     Route: 065
     Dates: start: 20200810
  3. ETOPOSIDE [Suspect]
     Active Substance: ETOPOSIDE
     Indication: Plasma cell myeloma refractory
     Dosage: 606 MG, EVERYDAY
     Route: 042
     Dates: start: 20200809
  4. RITUXIMAB [Suspect]
     Active Substance: RITUXIMAB
     Indication: Plasma cell myeloma refractory
     Dosage: 761 MG, ONCE
     Route: 042
     Dates: start: 20200626
  5. DEXAMETHASONE [Suspect]
     Active Substance: DEXAMETHASONE
     Indication: Plasma cell myeloma refractory
     Dosage: 160 MG, EVERYDAY
     Route: 048
     Dates: start: 20200627
  6. CYTARABINE [Suspect]
     Active Substance: CYTARABINE
     Indication: Plasma cell myeloma refractory
     Dosage: 16236 MG, EVERY ONE DAY, 8118 MG, BID
     Route: 042
     Dates: start: 20200628
  7. CARBOPLATIN [Suspect]
     Active Substance: CARBOPLATIN
     Indication: Plasma cell myeloma refractory
     Dosage: 613.7 MG, ONCE
     Route: 065
     Dates: start: 20200627
  8. BETAISODONA [Concomitant]
     Active Substance: POVIDONE-IODINE
     Indication: Prophylaxis
     Dosage: UNK
     Route: 065
     Dates: start: 20200627
  9. CYCLOSPORINE [Concomitant]
     Active Substance: CYCLOSPORINE
     Indication: Acute graft versus host disease
     Dosage: UNK
     Route: 065
     Dates: start: 20210116
  10. CYCLOSPORINE [Concomitant]
     Active Substance: CYCLOSPORINE
     Indication: Immunosuppressant drug therapy
     Dosage: 150 MG PER DAY
     Route: 065
     Dates: start: 20210115
  11. RUXOLITINIB [Concomitant]
     Active Substance: RUXOLITINIB
     Indication: Graft versus host disease
     Dosage: UNK
     Route: 065
     Dates: start: 20210201
  12. RUXOLITINIB [Concomitant]
     Active Substance: RUXOLITINIB
     Indication: Immunosuppressant drug therapy
  13. RAMIPRIL [Concomitant]
     Active Substance: RAMIPRIL
     Indication: Hypertension
     Dosage: UNK
     Route: 065
     Dates: start: 20200818
  14. ALLOPURINOL [Concomitant]
     Active Substance: ALLOPURINOL
     Indication: Prophylaxis
     Dosage: UNK
     Route: 065
     Dates: start: 20200721
  15. PANTOPRAZOLE SODIUM [Concomitant]
     Active Substance: PANTOPRAZOLE SODIUM
     Indication: Gastritis prophylaxis
     Dosage: UNK
     Route: 065
     Dates: start: 20200627
  16. AMPHO-MORONAL [Concomitant]
     Active Substance: AMPHOTERICIN B
     Indication: Antifungal prophylaxis
     Dosage: UNK
     Route: 065
     Dates: start: 20200627
  17. POSACONAZOLE [Concomitant]
     Active Substance: POSACONAZOLE
     Indication: Neutropenia
     Dosage: UNK
     Route: 065
     Dates: start: 20201117
  18. FLUDARABINE [Concomitant]
     Active Substance: FLUDARABINE PHOSPHATE
     Indication: Chemotherapy
     Dosage: 150 MG, EVERYDAY
     Route: 065
     Dates: start: 20200927, end: 20200929
  19. SULFAMETHOXAZOLE\TRIMETHOPRIM [Concomitant]
     Active Substance: SULFAMETHOXAZOLE\TRIMETHOPRIM
     Indication: Prophylaxis
     Dosage: UNK
     Route: 065
     Dates: start: 20200701
  20. ACYCLOVIR [Concomitant]
     Active Substance: ACYCLOVIR
     Indication: Antiviral prophylaxis
     Dosage: UNK
     Route: 065
     Dates: start: 20200630
  21. PREDNISOLONE [Concomitant]
     Active Substance: PREDNISOLONE
     Indication: Graft versus host disease
     Dosage: 10 MG, QD
     Route: 065
     Dates: start: 20210115
  22. PREDNISOLONE [Concomitant]
     Active Substance: PREDNISOLONE
     Indication: Immunosuppressant drug therapy
  23. MCP [Concomitant]
     Active Substance: METOCLOPRAMIDE HYDROCHLORIDE
     Indication: Prophylaxis of nausea and vomiting
     Dosage: UNK
     Route: 065
     Dates: start: 20200701
  24. LEVOFLOXACIN [Concomitant]
     Active Substance: LEVOFLOXACIN
     Indication: Neutropenia
     Dosage: UNK
     Route: 065
     Dates: start: 20201017
  25. BRENTUXIMAB [Concomitant]
     Active Substance: BRENTUXIMAB
     Indication: Chemotherapy
     Dosage: 118 MG
     Route: 065
     Dates: start: 20200829, end: 20200829
  26. CYCLOPHOSPHAMIDE [Concomitant]
     Active Substance: CYCLOPHOSPHAMIDE
     Indication: Chemotherapy
     Dosage: 1506 MG, EVERYDAY
     Route: 065
     Dates: start: 20200927, end: 20200929

REACTIONS (2)
  - BK virus infection [Recovered/Resolved]
  - Cystitis viral [Recovered/Resolved]

NARRATIVE: CASE EVENT DATE: 20210303
